FAERS Safety Report 13659514 (Version 1)
Quarter: 2017Q2

REPORT INFORMATION
  Report Type: Spontaneous
  Country: US (occurrence: US)
  Receive Date: 20170616
  Receipt Date: 20170616
  Transmission Date: 20170830
  Serious: Yes (Hospitalization)
  Sender: FDA-Public Use
  Company Number: None

PATIENT
  Age: 75 Year
  Sex: Female
  Weight: 87.3 kg

DRUGS (10)
  1. ALLOPURINOL. [Concomitant]
     Active Substance: ALLOPURINOL
  2. LANTUS [Concomitant]
     Active Substance: INSULIN GLARGINE
  3. AMLODIPINE [Concomitant]
     Active Substance: AMLODIPINE BESYLATE
  4. LASIX [Concomitant]
     Active Substance: FUROSEMIDE
  5. LOPRESSOR [Concomitant]
     Active Substance: METOPROLOL TARTRATE
  6. ASPIRIN. [Suspect]
     Active Substance: ASPIRIN
     Indication: CARDIAC FIBRILLATION
     Route: 048
  7. VITD3 [Concomitant]
  8. SYNTHROID [Concomitant]
     Active Substance: LEVOTHYROXINE SODIUM
  9. LIPITOR [Concomitant]
     Active Substance: ATORVASTATIN CALCIUM
  10. HUMALOG [Concomitant]
     Active Substance: INSULIN LISPRO

REACTIONS (4)
  - Gastrointestinal haemorrhage [None]
  - Haemorrhagic anaemia [None]
  - Pain in extremity [None]
  - Skin discolouration [None]

NARRATIVE: CASE EVENT DATE: 20170223
